FAERS Safety Report 6412611-2 (Version None)
Quarter: 2009Q4

REPORT INFORMATION
  Report Type: 
  Country: None (occurrence: None)
  Receive Date: 20091023
  Receipt Date: 20091013
  Transmission Date: 20100525
  Serious: Yes (Other)
  Sender: FDA-Public Use
  Company Number: PHEH2008US03145

PATIENT
  Sex: Female

DRUGS (2)
  1. AREDIA [Suspect]
  2. ZOMETA [Suspect]
     Dosage: MONTHLY
     Dates: start: 20050701

REACTIONS (15)
  - ANXIETY [None]
  - ARTHRITIS [None]
  - BEDRIDDEN [None]
  - DEPRESSION [None]
  - EMOTIONAL DISTRESS [None]
  - INFECTION [None]
  - INJURY [None]
  - INSOMNIA [None]
  - INTERVERTEBRAL DISC DEGENERATION [None]
  - OSTEONECROSIS [None]
  - PAIN [None]
  - PHYSICAL DISABILITY [None]
  - SCAR [None]
  - TOOTH EXTRACTION [None]
  - TOOTH INFECTION [None]
